FAERS Safety Report 14244342 (Version 5)
Quarter: 2018Q1

REPORT INFORMATION
  Report Type: Report from Study
  Country: CA (occurrence: CA)
  Receive Date: 20171201
  Receipt Date: 20180125
  Transmission Date: 20180508
  Serious: Yes (Life-Threatening, Hospitalization)
  Sender: FDA-Public Use
  Company Number: CA-JNJFOC-20171137698

PATIENT
  Age: 47 Year
  Sex: Female
  Weight: 60.78 kg

DRUGS (3)
  1. USTEKINUMAB [Suspect]
     Active Substance: USTEKINUMAB
     Indication: PSORIASIS
     Route: 058
     Dates: start: 201103, end: 201401
  2. SECUKINUMAB. [Concomitant]
     Active Substance: SECUKINUMAB
     Route: 065
     Dates: start: 201511
  3. ETANERCEPT [Concomitant]
     Active Substance: ETANERCEPT
     Route: 065
     Dates: start: 201405, end: 201509

REACTIONS (1)
  - Cerebrovascular accident [Recovered/Resolved]

NARRATIVE: CASE EVENT DATE: 20170716
